FAERS Safety Report 9516400 (Version 1)
Quarter: 2013Q3

REPORT INFORMATION
  Report Type: Spontaneous
  Country: IT (occurrence: None)
  Receive Date: 20130909
  Receipt Date: 20130909
  Transmission Date: 20140515
  Serious: Yes (Hospitalization)
  Sender: FDA-Public Use
  Company Number: AUR-APL-2013-07495

PATIENT
  Sex: Male
  Weight: 22.68 kg

DRUGS (1)
  1. LEVOFLOXACIN (LEVOFLOXACIN) [Suspect]
     Indication: PRODUCT USED FOR UNKNOWN INDICATION

REACTIONS (6)
  - Angioedema [None]
  - Dysphagia [None]
  - Dyspnoea [None]
  - Rash erythematous [None]
  - Tachycardia [None]
  - Tachypnoea [None]
